FAERS Safety Report 6761849-3 (Version None)
Quarter: 2010Q2

REPORT INFORMATION
  Report Type: 
  Country: None (occurrence: None)
  Receive Date: 20100609
  Receipt Date: 20100602
  Transmission Date: 20101027
  Serious: Yes (Hospitalization)
  Sender: FDA-Public Use
  Company Number: CN-JNJFOC-20100600862

PATIENT
  Sex: Female

DRUGS (1)
  1. CRAVIT [Suspect]
     Indication: URINARY TRACT INFECTION
     Route: 041

REACTIONS (2)
  - CYANOSIS [None]
  - LARYNGEAL OEDEMA [None]
